FAERS Safety Report 13692393 (Version 1)
Quarter: 2017Q2

REPORT INFORMATION
  Report Type: Spontaneous
  Country: US (occurrence: US)
  Receive Date: 20170627
  Receipt Date: 20170627
  Transmission Date: 20170830
  Serious: Yes (Other)
  Sender: FDA-Public Use
  Company Number: US-ROCHE-1951358

PATIENT
  Sex: Male
  Weight: 57.66 kg

DRUGS (2)
  1. TECENTRIQ [Suspect]
     Active Substance: ATEZOLIZUMAB
     Indication: BLADDER CANCER
     Dosage: YES
     Route: 065
     Dates: start: 201612
  2. TECENTRIQ [Suspect]
     Active Substance: ATEZOLIZUMAB
     Indication: LUNG NEOPLASM MALIGNANT

REACTIONS (8)
  - Nephrostomy [Unknown]
  - Bladder neoplasm [Not Recovered/Not Resolved]
  - Abnormal loss of weight [Unknown]
  - Penile pain [Not Recovered/Not Resolved]
  - Urinary bladder haemorrhage [Not Recovered/Not Resolved]
  - Haemorrhage [Not Recovered/Not Resolved]
  - Dysstasia [Not Recovered/Not Resolved]
  - Penile burning sensation [Not Recovered/Not Resolved]

NARRATIVE: CASE EVENT DATE: 2017
